FAERS Safety Report 9775086 (Version 2)
Quarter: 2014Q2

REPORT INFORMATION
  Report Type: Spontaneous
  Country: US (occurrence: US)
  Receive Date: 20131220
  Receipt Date: 20140409
  Transmission Date: 20141212
  Serious: Yes (Hospitalization)
  Sender: FDA-Public Use
  Company Number: US-BAYER-2013-154426

PATIENT
  Age: 26 Year
  Sex: Female
  Weight: 58.96 kg

DRUGS (1)
  1. MIRENA [Suspect]
     Indication: CONTRACEPTION
     Dosage: 20 MCG/24HR, CONT
     Route: 015
     Dates: start: 20100701, end: 20130207

REACTIONS (10)
  - Device dislocation [None]
  - Medical device discomfort [None]
  - Medical device pain [None]
  - Injury [None]
  - Ovarian cyst [None]
  - Dyspareunia [None]
  - Depression [None]
  - Anxiety [None]
  - Nervousness [None]
  - Device issue [None]
